FAERS Safety Report 21721432 (Version 3)
Quarter: 2023Q1

REPORT INFORMATION
  Report Type: Spontaneous
  Country: US (occurrence: US)
  Receive Date: 20221213
  Receipt Date: 20230330
  Transmission Date: 20230418
  Serious: Yes (Death, Hospitalization, Other)
  Sender: FDA-Public Use
  Company Number: US-GSK-US2022182662

PATIENT

DRUGS (13)
  1. TRELEGY ELLIPTA [Suspect]
     Active Substance: FLUTICASONE FUROATE\UMECLIDINIUM BROMIDE\VILANTEROL TRIFENATATE
     Indication: Chronic obstructive pulmonary disease
     Dosage: 1 PUFF(S), QD 100/62.5/25MCG INH 30 ONE PUFF ONCE DAILY
  2. ALBUTEROL [Concomitant]
     Active Substance: ALBUTEROL
     Indication: Chronic obstructive pulmonary disease
     Dosage: 2 PUFF(S), QID
  3. BISACODYL [Concomitant]
     Active Substance: BISACODYL
     Indication: Constipation
     Dosage: 2 DF PRN
     Dates: start: 20221205
  4. CALCIUM CARBONATE [Concomitant]
     Active Substance: CALCIUM CARBONATE
     Indication: Dyspepsia
     Dosage: 200 MG, TID 200 MG THREE TIMES A DAY AS NEEDED
     Dates: start: 20221205
  5. VITAMIN B12 [Concomitant]
     Active Substance: CYANOCOBALAMIN
     Indication: Vitamin supplementation
     Dosage: 2 PUFF(S), QD 2000 MCG  TWO TABLETS ONCE DAILY
  6. FERROUS SULFATE [Concomitant]
     Active Substance: FERROUS SULFATE
     Indication: Product used for unknown indication
     Dosage: 325 MG TAB ONCE DAILY
  7. GABAPENTIN [Concomitant]
     Active Substance: GABAPENTIN
     Indication: Neuralgia
     Dosage: 100 MG TWO TIMES A DAY ONE CAPSULE IN AM TWO CAPSULES IN PM
     Dates: start: 20221129
  8. LOVASTATIN [Concomitant]
     Active Substance: LOVASTATIN
     Indication: Product used for unknown indication
     Dosage: 20 MG TAB  ON AT BEDTIME
  9. PANTOPRAZOLE [Concomitant]
     Active Substance: PANTOPRAZOLE
     Indication: Dyspepsia
     Dosage: 40 MG ONCE DAILY
     Dates: start: 20221129
  10. PAXIL [Concomitant]
     Active Substance: PAROXETINE HYDROCHLORIDE
     Indication: Depression
     Dosage: 10 MG ONCE DAILY
  11. PRAMIPEXOLE [Concomitant]
     Active Substance: PRAMIPEXOLE
     Indication: Restless legs syndrome
     Dosage: 0.25 MG ONE TABLET IN MORNING 4 TABLETS IN PM
  12. SENNA [Concomitant]
     Active Substance: SENNA LEAF\SENNOSIDES\SENNOSIDES A AND B
     Indication: Constipation
     Dosage: 8.6 MG TABLETS ONE TABLET TWICE A DAY
     Dates: start: 20221001
  13. TRAZODONE [Concomitant]
     Active Substance: TRAZODONE HYDROCHLORIDE
     Indication: Insomnia
     Dosage: 50 MG ONCE A DAY AT BEDTIME

REACTIONS (9)
  - Chronic obstructive pulmonary disease [Fatal]
  - Atrial fibrillation [Not Recovered/Not Resolved]
  - Aortic valve disease [Not Recovered/Not Resolved]
  - Gastric haemorrhage [Not Recovered/Not Resolved]
  - Intestinal haemorrhage [Not Recovered/Not Resolved]
  - Pain in extremity [Not Recovered/Not Resolved]
  - Carotid artery disease [Not Recovered/Not Resolved]
  - Hypertension [Not Recovered/Not Resolved]
  - Obstructive airways disorder [Unknown]

NARRATIVE: CASE EVENT DATE: 20221129
